FAERS Safety Report 16018181 (Version 1)
Quarter: 2019Q1

REPORT INFORMATION
  Report Type: Spontaneous
  Country: US (occurrence: US)
  Receive Date: 20190228
  Receipt Date: 20190228
  Transmission Date: 20190418
  Serious: No
  Sender: FDA-Public Use
  Company Number: US-JNJFOC-20190212372

PATIENT
  Age: 47 Year
  Sex: Female
  Weight: 56.7 kg

DRUGS (1)
  1. NORGESTIMATE/ETHINYL ESTRADIOL [Suspect]
     Active Substance: ETHINYL ESTRADIOL\NORGESTIMATE
     Indication: CONTRACEPTION
     Dosage: STARTED DRUG 16 YEARS AGO.
     Route: 065
     Dates: start: 20190203

REACTIONS (1)
  - Expired product administered [Unknown]

NARRATIVE: CASE EVENT DATE: 20190203
